FAERS Safety Report 8590808-3 (Version None)
Quarter: 2012Q3

REPORT INFORMATION
  Report Type: 
  Country: None (occurrence: None)
  Receive Date: 20120731
  Receipt Date: 20120719
  Transmission Date: 20120928
  Serious: Yes (Hospitalization)
  Sender: FDA-Public Use
  Company Number: AUR-APL-2012-03062

PATIENT
  Age: 85 Year
  Sex: Female

DRUGS (7)
  1. PANTOPRAZOLE [Concomitant]
  2. MIRTAZAPINE [Suspect]
     Indication: DEPRESSION
     Dosage: (30 MG), UNKNOWN
  3. VENLAFAXINE HCL [Suspect]
     Indication: DEPRESSION
     Dosage: (150 MG), UNKNOWN
  4. BISOPROLOL FUMARATE [Concomitant]
  5. LEVOTHYROXINE SODIUM [Concomitant]
  6. SODIUM PICOSULFATE (SODIUM PICOSULFATE) [Concomitant]
  7. CALCIUM/VITAMIN D3 SUPPLEMENTS (LEKOVIT CA) [Concomitant]

REACTIONS (18)
  - METABOLIC ENCEPHALOPATHY [None]
  - HYPERTENSION [None]
  - RESTLESSNESS [None]
  - HYPERHIDROSIS [None]
  - MYDRIASIS [None]
  - URINE ODOUR ABNORMAL [None]
  - GENERAL PHYSICAL HEALTH DETERIORATION [None]
  - EXTENSOR PLANTAR RESPONSE [None]
  - CONFUSIONAL STATE [None]
  - TACHYCARDIA [None]
  - HYPERREFLEXIA [None]
  - MYOCLONUS [None]
  - SEROTONIN SYNDROME [None]
  - LOSS OF CONSCIOUSNESS [None]
  - HYPERTONIA [None]
  - ESCHERICHIA URINARY TRACT INFECTION [None]
  - EPILEPSY [None]
  - TOXICITY TO VARIOUS AGENTS [None]
